FAERS Safety Report 4602088-1 (Version None)
Quarter: 2005Q1

REPORT INFORMATION
  Report Type: 
  Country: None (occurrence: None)
  Receive Date: 20050308
  Receipt Date: 20050303
  Transmission Date: 20050727
  Serious: Yes (Life-Threatening)
  Sender: FDA-Public Use
  Company Number: DE-MERCK-0503DEU00033

PATIENT
  Age: 38 Year
  Sex: Male
  Weight: 83 kg

DRUGS (1)
  1. VIOXX [Suspect]
     Indication: OSTEOARTHRITIS
     Route: 048
     Dates: start: 20020314, end: 20031112

REACTIONS (1)
  - MYOCARDIAL INFARCTION [None]
